FAERS Safety Report 8280426-9 (Version None)
Quarter: 2012Q2

REPORT INFORMATION
  Report Type: 
  Country: None (occurrence: None)
  Receive Date: 20120412
  Receipt Date: 20110927
  Transmission Date: 20120825
  Serious: No
  Sender: FDA-Public Use
  Company Number: US-ASTRAZENECA-2011SE54235

PATIENT
  Age: 60 Year
  Sex: Female

DRUGS (3)
  1. NEXIUM [Suspect]
     Route: 048
  2. ACIPHEX [Concomitant]
  3. STEROIDS [Suspect]
     Route: 065

REACTIONS (9)
  - GASTRIC ULCER [None]
  - GASTROOESOPHAGEAL REFLUX DISEASE [None]
  - CANDIDIASIS [None]
  - PNEUMONIA [None]
  - PHARYNGEAL ULCERATION [None]
  - MALAISE [None]
  - DRUG DOSE OMISSION [None]
  - COUGH [None]
  - DYSPHONIA [None]
